FAERS Safety Report 6336096-X (Version None)
Quarter: 2009Q3

REPORT INFORMATION
  Report Type: 
  Country: None (occurrence: None)
  Receive Date: 20090901
  Receipt Date: 20090824
  Transmission Date: 20100115
  Serious: Yes (Other)
  Sender: FDA-Public Use
  Company Number: US-JNJFOC-20090807441

PATIENT
  Sex: Male
  Weight: 51.84 kg

DRUGS (1)
  1. CONCERTA [Suspect]
     Indication: ATTENTION DEFICIT/HYPERACTIVITY DISORDER
     Dosage: 18, 36 MG
     Route: 048

REACTIONS (2)
  - CONTUSION [None]
  - INTENTIONAL SELF-INJURY [None]
